FAERS Safety Report 20605319 (Version 1)
Quarter: 2022Q1

REPORT INFORMATION
  Report Type: Spontaneous
  Country: US (occurrence: None)
  Receive Date: 20220317
  Receipt Date: 20220317
  Transmission Date: 20220423
  Serious: Yes (Hospitalization)
  Sender: FDA-Public Use
  Company Number: US-ROCHE-3049510

PATIENT
  Age: 64 Year
  Sex: Male
  Weight: 65.5 kg

DRUGS (3)
  1. ESBRIET [Suspect]
     Active Substance: PIRFENIDONE
     Indication: Product used for unknown indication
     Dosage: 4 FULL CYCLES OF PIRFERFENIDONE LAST KNOWN DOSE ON 29/JUN/2018
     Route: 065
  2. CARBOPLATIN [Suspect]
     Active Substance: CARBOPLATIN
     Indication: Product used for unknown indication
     Dosage: 4TH LAST DOSE ON 08/JUN/2018?5TH LAST DOSE 29/JUN/2018
     Route: 065
  3. ASPIRIN [Concomitant]
     Active Substance: ASPIRIN
     Route: 048

REACTIONS (1)
  - Superior vena cava syndrome [Unknown]

NARRATIVE: CASE EVENT DATE: 20180713
